FAERS Safety Report 4357785-2 (Version None)
Quarter: 2004Q2

REPORT INFORMATION
  Report Type: 
  Country: None (occurrence: None)
  Receive Date: 20040513
  Receipt Date: 20040322
  Transmission Date: 20050107
  Serious: Yes (Other)
  Sender: FDA-Public Use
  Company Number: US-MERCK-0403USA01989

PATIENT
  Age: 45 Year
  Sex: Female
  Weight: 73 kg

DRUGS (2)
  1. ZOCOR [Suspect]
     Indication: HYPERCHOLESTEROLAEMIA
     Route: 048
     Dates: start: 20030803
  2. EFFEXOR XR [Concomitant]
     Indication: AFFECTIVE DISORDER
     Route: 048
     Dates: start: 20030801, end: 20030901

REACTIONS (4)
  - DYSPEPSIA [None]
  - GASTROOESOPHAGEAL REFLUX DISEASE [None]
  - HOARSENESS [None]
  - THROAT IRRITATION [None]
